FAERS Safety Report 5950010-8 (Version None)
Quarter: 2008Q4

REPORT INFORMATION
  Report Type: 
  Country: None (occurrence: None)
  Receive Date: 20081111
  Receipt Date: 20071102
  Transmission Date: 20090506
  Serious: No
  Sender: FDA-Public Use
  Company Number: US-BRISTOL-MYERS SQUIBB COMPANY-13967344

PATIENT
  Age: 40 Year
  Sex: Male

DRUGS (2)
  1. SUSTIVA [Suspect]
  2. SEROSTIM [Suspect]
     Indication: CACHEXIA

REACTIONS (1)
  - NIGHTMARE [None]
